FAERS Safety Report 12994283 (Version 1)
Quarter: 2016Q4

REPORT INFORMATION
  Report Type: Spontaneous
  Country: US (occurrence: US)
  Receive Date: 20161202
  Receipt Date: 20161202
  Transmission Date: 20170207
  Serious: Yes (Death, Life-Threatening, Hospitalization, Disabling, Congenital Anomaly, Other)
  Sender: FDA-Public Use
  Company Number: None

PATIENT
  Age: 88 Year
  Sex: Female
  Weight: 49.9 kg

DRUGS (11)
  1. BISOPROLOL [Concomitant]
     Active Substance: BISOPROLOL
  2. CALCIUM WITH VIT D [Concomitant]
  3. ALLEGRA [Concomitant]
     Active Substance: FEXOFENADINE HYDROCHLORIDE
  4. TYLENOL [Concomitant]
     Active Substance: ACETAMINOPHEN
  5. ASPIRIN. [Concomitant]
     Active Substance: ASPIRIN
  6. PROLIA [Suspect]
     Active Substance: DENOSUMAB
     Indication: OSTEOPOROSIS
     Dosage: INJECTION X2
     Dates: start: 20140311, end: 20140916
  7. ALLOPURINOL. [Concomitant]
     Active Substance: ALLOPURINOL
  8. TRIAMCINOLONE [Concomitant]
     Active Substance: TRIAMCINOLONE
  9. VITAMIN B12 [Concomitant]
     Active Substance: CYANOCOBALAMIN
  10. ALIGN [Concomitant]
     Active Substance: BIFIDOBACTERIUM LONGUM SUBSP. INFANTIS
  11. VITAMIN D [Concomitant]
     Active Substance: CHOLECALCIFEROL

REACTIONS (20)
  - Impaired driving ability [None]
  - Dizziness [None]
  - Abasia [None]
  - Activities of daily living impaired [None]
  - Diarrhoea [None]
  - Chest pain [None]
  - Feeling jittery [None]
  - Pruritus [None]
  - Hypersensitivity [None]
  - Balance disorder [None]
  - Headache [None]
  - Ear pruritus [None]
  - Pain [None]
  - Myalgia [None]
  - Pain in jaw [None]
  - Dyspnoea [None]
  - Urticaria [None]
  - Cystitis [None]
  - Tremor [None]
  - Neck pain [None]

NARRATIVE: CASE EVENT DATE: 20140403
